FAERS Safety Report 5830962-7 (Version None)
Quarter: 2008Q3

REPORT INFORMATION
  Report Type: 
  Country: None (occurrence: None)
  Receive Date: 20080801
  Receipt Date: 20080229
  Transmission Date: 20090109
  Serious: No
  Sender: FDA-Public Use
  Company Number: US-BRISTOL-MYERS SQUIBB COMPANY-14097869

PATIENT
  Age: 80 Year
  Sex: Female
  Weight: 77 kg

DRUGS (1)
  1. COUMADIN [Suspect]
     Indication: THROMBOSIS
     Dosage: 1 DOSAGE FORM = 1/2 TO 1 TABLET DAILY

REACTIONS (2)
  - BLOOD GLUCOSE INCREASED [None]
  - NASOPHARYNGITIS [None]
